FAERS Safety Report 18992437 (Version 3)
Quarter: 2021Q4

REPORT INFORMATION
  Report Type: Report from Study
  Country: FI (occurrence: FI)
  Receive Date: 20210310
  Receipt Date: 20211027
  Transmission Date: 20220303
  Serious: Yes (Hospitalization, Other)
  Sender: FDA-Public Use
  Company Number: FI-NAPPMUNDI-GBR-2021-0083646

PATIENT

DRUGS (38)
  1. DEXAMETHASONE [Suspect]
     Active Substance: DEXAMETHASONE
     Indication: Steroid therapy
     Dosage: 20 MG, 1 DOSE 8 HOURS
     Route: 042
     Dates: start: 20201126
  2. DEXAMETHASONE [Suspect]
     Active Substance: DEXAMETHASONE
     Indication: Cytokine release syndrome
     Dosage: 9 MG, 1 DOSE 8 HOURS
     Route: 048
     Dates: start: 20201129, end: 20201130
  3. DEXAMETHASONE [Suspect]
     Active Substance: DEXAMETHASONE
     Indication: Central nervous system lymphoma
     Dosage: 10 MG, 1 DOSE 8 HOURS
     Route: 042
     Dates: start: 20201125
  4. DEXAMETHASONE [Suspect]
     Active Substance: DEXAMETHASONE
     Indication: Muscular weakness
     Dosage: 10 MG, 1 DOSE 24 HOURS
     Route: 042
     Dates: start: 20201121
  5. DEXAMETHASONE [Suspect]
     Active Substance: DEXAMETHASONE
     Indication: Neurotoxicity
     Dosage: 10 MG, 1 DOSE 8 HOURS
     Route: 042
     Dates: start: 20201128, end: 20201129
  6. DEXAMETHASONE [Suspect]
     Active Substance: DEXAMETHASONE
     Indication: Neurological symptom
     Dosage: 6 MG, 1 DOSE 12 HOURS
     Route: 048
     Dates: start: 20210118, end: 20210122
  7. DEXAMETHASONE [Suspect]
     Active Substance: DEXAMETHASONE
     Indication: Prophylaxis
     Dosage: 6 MG, 1 DOSE 12 HOURS
     Route: 048
     Dates: start: 20201130, end: 20201201
  8. DEXAMETHASONE [Suspect]
     Active Substance: DEXAMETHASONE
     Indication: Pyrexia
     Dosage: 10 MG, 1 DOSE 12 HOURS
     Route: 048
     Dates: start: 20210115, end: 20210118
  9. DEXAMETHASONE [Suspect]
     Active Substance: DEXAMETHASONE
     Dosage: 4 MG, 1 DOSE 12 HOURS
     Route: 048
     Dates: start: 20201202, end: 20201203
  10. DEXAMETHASONE [Suspect]
     Active Substance: DEXAMETHASONE
     Dosage: 10 MG, QD (6 PLUS 4 MG, 1 IN 12 HOURS)
     Route: 048
     Dates: start: 20210123
  11. DEXAMETHASONE [Suspect]
     Active Substance: DEXAMETHASONE
     Dosage: 6 MG IN 24 H
     Route: 048
     Dates: start: 20210213
  12. OXYCONTIN [Suspect]
     Active Substance: OXYCODONE HYDROCHLORIDE
     Indication: Cancer pain
     Dosage: 10 MG, 1 DOSE 12 HOURS
     Route: 048
     Dates: start: 20201221, end: 20201228
  13. OXYCONTIN [Suspect]
     Active Substance: OXYCODONE HYDROCHLORIDE
     Indication: Neuralgia
     Dosage: 30 MG, 1 DOSE 12 HOURS
     Route: 048
     Dates: start: 20201121
  14. OXYCONTIN [Suspect]
     Active Substance: OXYCODONE HYDROCHLORIDE
     Dosage: UNK UNK, PRN
     Route: 048
     Dates: start: 20201121
  15. OXYCONTIN [Suspect]
     Active Substance: OXYCODONE HYDROCHLORIDE
     Dosage: 80 MG, 1 DOSE 12 HOURS
     Route: 048
     Dates: start: 20201122
  16. OXYCONTIN [Suspect]
     Active Substance: OXYCODONE HYDROCHLORIDE
     Dosage: 20 MG, 1 DOSE 12 HOURS
     Route: 048
     Dates: start: 20201007
  17. OXYCONTIN [Suspect]
     Active Substance: OXYCODONE HYDROCHLORIDE
     Dosage: 40 MG, Q12H
     Route: 048
     Dates: start: 20201007
  18. OXYCONTIN [Suspect]
     Active Substance: OXYCODONE HYDROCHLORIDE
     Dosage: UNK, PRN
     Route: 048
     Dates: start: 20200819
  19. OXYCONTIN [Suspect]
     Active Substance: OXYCODONE HYDROCHLORIDE
     Dosage: 60 MG, 1 DOSE 12 HOURS
     Route: 048
     Dates: start: 20201121
  20. OXYCONTIN [Suspect]
     Active Substance: OXYCODONE HYDROCHLORIDE
     Dosage: 20 MG, 1 DOSE 12 HOURS
     Route: 048
     Dates: start: 20201221, end: 20201228
  21. CYCLOPHOSPHAMIDE [Suspect]
     Active Substance: CYCLOPHOSPHAMIDE
     Indication: B-cell lymphoma
     Dosage: 300 MG/M2, QD
     Route: 042
     Dates: start: 20201111, end: 20201113
  22. TOCILIZUMAB [Suspect]
     Active Substance: TOCILIZUMAB
     Indication: Cytokine release syndrome
     Dosage: 760 MG, SINGLE
     Route: 042
     Dates: start: 20201121
  23. TOCILIZUMAB [Suspect]
     Active Substance: TOCILIZUMAB
     Indication: Pyrexia
     Dosage: UNK
     Route: 065
  24. FLUDARABINE [Suspect]
     Active Substance: FLUDARABINE PHOSPHATE
     Indication: B-cell lymphoma
     Dosage: 30 MG/M2, QD
     Route: 042
     Dates: start: 20201111, end: 20201113
  25. LISOCABTAGENE MARALEUCEL [Suspect]
     Active Substance: LISOCABTAGENE MARALEUCEL
     Indication: B-cell lymphoma
     Dosage: 1 X 10E8 CAR + T CELLS SINGLE
     Route: 042
     Dates: start: 20201119, end: 20201119
  26. PANTOPRAZOLE SODIUM [Concomitant]
     Active Substance: PANTOPRAZOLE SODIUM
     Indication: Prophylaxis
     Dosage: 40 MG, 1 DOSE 24 HOURS
     Route: 048
     Dates: start: 20201006
  27. LEVETIRACETAM [Concomitant]
     Active Substance: LEVETIRACETAM
     Indication: Neurotoxicity
     Dosage: 1000 MG, 1 DOSE 12 HOURS
     Route: 048
     Dates: start: 20201125
  28. FUROSEMIDE [Concomitant]
     Active Substance: FUROSEMIDE
     Indication: Oedema peripheral
     Dosage: 40 MG, 1 DOSE 24 HOURS
     Route: 048
     Dates: start: 20201118
  29. FUROSEMIDE [Concomitant]
     Active Substance: FUROSEMIDE
     Dosage: 20 MG, 1 DOSE 24 HOURS
     Route: 048
     Dates: start: 20201215, end: 20210111
  30. FUROSEMIDE [Concomitant]
     Active Substance: FUROSEMIDE
     Dosage: 20 MG, 1 DOSE 24 HOURS
     Route: 048
     Dates: start: 20201112
  31. FUROSEMIDE [Concomitant]
     Active Substance: FUROSEMIDE
     Dosage: 20 MG, 1 DOSE 24 HOURS
     Route: 048
     Dates: start: 20201121
  32. PREDNISOLONE [Concomitant]
     Active Substance: PREDNISOLONE
     Indication: Steroid therapy
     Dosage: 10 MG, 1 DOSE 24 HOURS
     Route: 048
     Dates: start: 20201204, end: 20201210
  33. PREDNISOLONE [Concomitant]
     Active Substance: PREDNISOLONE
     Dosage: 20 MG, 1 DOSE 24 HOURS
     Route: 048
     Dates: start: 20201210, end: 20201228
  34. FILGRASTIM [Concomitant]
     Active Substance: FILGRASTIM
     Indication: Neutropenia
     Dosage: 48000000 IU, 1 DOSE 24 HOURS
     Route: 058
     Dates: start: 20201125
  35. CEFTRIAXONE [Concomitant]
     Active Substance: CEFTRIAXONE
     Indication: Prophylaxis
     Dosage: 2 G, 1 DOSE 24 HOURS
     Route: 042
     Dates: start: 20201121
  36. SULFAMETHOXAZOLE\TRIMETHOPRIM [Concomitant]
     Active Substance: SULFAMETHOXAZOLE\TRIMETHOPRIM
     Indication: Infection prophylaxis
     Dosage: 3 DOSAGE FORM, 1 DOSE WEEKLY
     Route: 048
     Dates: start: 20200819
  37. POLYETHYLENE GLYCOL 4000 [Concomitant]
     Active Substance: POLYETHYLENE GLYCOL 4000
     Indication: Constipation prophylaxis
     Dosage: 24 MG, 1 DOSE 12 HOURS
     Route: 048
     Dates: start: 20201120
  38. ONDANSETRON [Concomitant]
     Active Substance: ONDANSETRON
     Indication: Nausea
     Dosage: 16 MG, 1 DOSE 12 HOURS
     Route: 048
     Dates: start: 20201118

REACTIONS (6)
  - Urinary retention [Unknown]
  - Dizziness [Unknown]
  - Impaired self-care [Unknown]
  - Constipation [Recovered/Resolved]
  - Tremor [Unknown]
  - Muscular weakness [Recovered/Resolved]

NARRATIVE: CASE EVENT DATE: 20210110
